FAERS Safety Report 8539987-4 (Version None)
Quarter: 2012Q3

REPORT INFORMATION
  Report Type: 
  Country: None (occurrence: None)
  Receive Date: 20120726
  Receipt Date: 20120717
  Transmission Date: 20120928
  Serious: Yes (Hospitalization)
  Sender: FDA-Public Use
  Company Number: IT-EISAI INC-E3810-05697-SPO-IT

PATIENT
  Sex: Male

DRUGS (2)
  1. GAVISCON [Concomitant]
     Dosage: 100MG + 200MG/10ML
     Route: 048
     Dates: start: 20120629
  2. RABEPRAZOLE SODIUM [Suspect]
     Route: 048
     Dates: start: 20120705, end: 20120707

REACTIONS (3)
  - VERTIGO [None]
  - VISION BLURRED [None]
  - HEADACHE [None]
